FAERS Safety Report 4868109-6 (Version None)
Quarter: 2005Q4

REPORT INFORMATION
  Report Type: 
  Country: None (occurrence: None)
  Receive Date: 20051227
  Receipt Date: 20051227
  Transmission Date: 20060501
  Serious: Yes (Death, Hospitalization)
  Sender: FDA-Public Use
  Company Number: None

PATIENT
  Sex: Male
  Weight: 50.5 kg

DRUGS (6)
  1. CYTARABINE [Suspect]
     Indication: ACUTE MYELOID LEUKAEMIA
     Dosage: SEE IMAGE
     Route: 042
     Dates: start: 20050615, end: 20051015
  2. CYTARABINE [Suspect]
     Indication: ACUTE MYELOID LEUKAEMIA
     Dosage: SEE IMAGE
     Route: 042
     Dates: start: 20051011
  3. DAUNORUBICIN [Suspect]
     Dosage: SEE IMAGE
     Dates: start: 20050616, end: 20050725
  4. ETOPOSIDE [Suspect]
     Dosage: SEE IMAGE
     Dates: start: 20050616, end: 20050910
  5. GEMTUZUMAB [Suspect]
     Dosage: SEE IMAGE
     Dates: start: 20050620, end: 20051018
  6. MITOXANTRONE HYDROCHLORIDE [Suspect]
     Dosage: SEE IMAGE
     Dates: start: 20051013, end: 20051017

REACTIONS (1)
  - BRONCHOPULMONARY ASPERGILLOSIS [None]
